FAERS Safety Report 24200575 (Version 1)
Quarter: 2024Q3

REPORT INFORMATION
  Report Type: Spontaneous
  Country: CN (occurrence: CN)
  Receive Date: 20240812
  Receipt Date: 20240812
  Transmission Date: 20241016
  Serious: Yes (Hospitalization)
  Sender: BAYER
  Company Number: CN-BAYER-2024A115782

PATIENT
  Age: 64 Year
  Sex: Female
  Weight: 55 kg

DRUGS (2)
  1. GLUCOBAY [Suspect]
     Active Substance: ACARBOSE
     Indication: Type 2 diabetes mellitus
     Dosage: 50 MG, TID
     Route: 048
     Dates: start: 20240401, end: 20240725
  2. RED YEAST [Suspect]
     Active Substance: RED YEAST
     Indication: Lipids abnormal
     Dosage: 0.6 G, TID
     Route: 048
     Dates: start: 20240401, end: 20240725

REACTIONS (4)
  - Hepatic function abnormal [Recovering/Resolving]
  - Myalgia [Recovered/Resolved]
  - Asthenia [None]
  - Food aversion [None]

NARRATIVE: CASE EVENT DATE: 20240724
